FAERS Safety Report 6773966-2 (Version None)
Quarter: 2010Q2

REPORT INFORMATION
  Report Type: 
  Country: None (occurrence: None)
  Receive Date: 20100617
  Receipt Date: 20100217
  Transmission Date: 20101027
  Serious: Yes (Death, Other)
  Sender: FDA-Public Use
  Company Number: US-ASTRAZENECA-2008UW27527

PATIENT
  Age: 837 Month
  Sex: Female
  Weight: 95.3 kg

DRUGS (8)
  1. SEROQUEL [Suspect]
     Indication: INJURY
     Route: 048
     Dates: start: 20051116, end: 20061001
  2. DILTIAZEM HCL [Concomitant]
     Dates: start: 20051116
  3. PREDNISONE [Concomitant]
     Dates: start: 20051102
  4. FUROSEMIDE [Concomitant]
     Dates: start: 20051116
  5. LISINOPRIL [Concomitant]
     Dates: start: 20051130
  6. HYDROCODONE BITARTRATE AND ACETAMINOPHEN [Concomitant]
     Dates: start: 20051205
  7. ALPRAZOLAM [Concomitant]
     Indication: GENERALISED ANXIETY DISORDER
     Dates: start: 20051205
  8. LEVAQUIN [Concomitant]
     Dates: start: 20051216

REACTIONS (8)
  - ASCITES [None]
  - CYSTITIS [None]
  - DIABETES MELLITUS [None]
  - FISTULA [None]
  - KETOACIDOSIS [None]
  - PANCREATITIS [None]
  - PLEURAL EFFUSION [None]
  - URINARY TRACT INFECTION [None]
